FAERS Safety Report 15233689 (Version 3)
Quarter: 2018Q3

REPORT INFORMATION
  Report Type: Report from Study
  Country: US (occurrence: US)
  Receive Date: 20180802
  Receipt Date: 20180828
  Transmission Date: 20181010
  Serious: Yes (Hospitalization)
  Sender: FDA-Public Use
  Company Number: US-ACTELION-A-NJ2018-173291

PATIENT
  Age: 66 Year
  Sex: Male

DRUGS (2)
  1. UPTRAVI [Suspect]
     Active Substance: SELEXIPAG
     Indication: PULMONARY ARTERIAL HYPERTENSION
     Dosage: 400 MCG, BID
     Route: 048
     Dates: start: 20180515
  2. UPTRAVI [Suspect]
     Active Substance: SELEXIPAG
     Dosage: 600 MCG, BID
     Route: 048
     Dates: start: 20180618

REACTIONS (23)
  - Type 2 diabetes mellitus [Unknown]
  - Limb discomfort [Not Recovered/Not Resolved]
  - Hyponatraemic syndrome [Unknown]
  - Fluid retention [Unknown]
  - Paraesthesia [Not Recovered/Not Resolved]
  - Neuropathy peripheral [Not Recovered/Not Resolved]
  - Blood glucose increased [Unknown]
  - Ascites [Unknown]
  - Drug dose omission [Unknown]
  - Condition aggravated [Unknown]
  - Weight increased [Unknown]
  - Blood pressure decreased [Unknown]
  - Asthenia [Not Recovered/Not Resolved]
  - Blood glucose abnormal [Unknown]
  - Malaise [Unknown]
  - Vision blurred [Not Recovered/Not Resolved]
  - Blood potassium increased [Unknown]
  - Lethargy [Not Recovered/Not Resolved]
  - Dyspnoea [Not Recovered/Not Resolved]
  - Oedema peripheral [Unknown]
  - Heart rate decreased [Unknown]
  - Confusional state [Not Recovered/Not Resolved]
  - Dizziness [Unknown]

NARRATIVE: CASE EVENT DATE: 20180629
